FAERS Safety Report 7792031-9 (Version None)
Quarter: 2011Q3

REPORT INFORMATION
  Report Type: 
  Country: None (occurrence: None)
  Receive Date: 20110930
  Receipt Date: 20110930
  Transmission Date: 20111222
  Serious: Yes (Life-Threatening)
  Sender: FDA-Public Use
  Company Number: None

PATIENT
  Age: 54 Year
  Sex: Male
  Weight: 88.2 kg

DRUGS (2)
  1. LISINOPRIL [Suspect]
     Indication: BLOOD PRESSURE
     Dosage: 10MG DAILY
     Dates: start: 20110401
  2. LISINOPRIL [Suspect]
     Indication: BLOOD PRESSURE
     Dosage: 10MG DAILY
     Dates: start: 20110822

REACTIONS (9)
  - PAIN [None]
  - DIZZINESS [None]
  - BLOOD PRESSURE DECREASED [None]
  - BLOOD PRESSURE INCREASED [None]
  - MUSCLE SPASMS [None]
  - THROMBOSIS [None]
  - CARDIAC FLUTTER [None]
  - DEHYDRATION [None]
  - SKIN DISCOLOURATION [None]
